FAERS Safety Report 25007837 (Version 2)
Quarter: 2025Q1

REPORT INFORMATION
  Report Type: Report from Study
  Country: IT (occurrence: IT)
  Receive Date: 20250225
  Receipt Date: 20250303
  Transmission Date: 20250409
  Serious: Yes (Hospitalization, Other)
  Sender: ABBVIE
  Company Number: IT-ABBVIE-6145488

PATIENT
  Age: 74 Year
  Sex: Male

DRUGS (29)
  1. VENETOCLAX [Suspect]
     Active Substance: VENETOCLAX
     Indication: Acute myeloid leukaemia
     Route: 048
     Dates: start: 20240730, end: 20240730
  2. VENETOCLAX [Suspect]
     Active Substance: VENETOCLAX
     Indication: Acute myeloid leukaemia
     Route: 048
     Dates: start: 20240902, end: 20240915
  3. VENETOCLAX [Suspect]
     Active Substance: VENETOCLAX
     Indication: Acute myeloid leukaemia
     Route: 048
     Dates: start: 20240729, end: 20240729
  4. VENETOCLAX [Suspect]
     Active Substance: VENETOCLAX
     Indication: Acute myeloid leukaemia
     Route: 048
     Dates: start: 20240731, end: 20240818
  5. VENETOCLAX [Suspect]
     Active Substance: VENETOCLAX
     Indication: Acute myeloid leukaemia
     Route: 048
     Dates: start: 20241118, end: 20241121
  6. VENETOCLAX [Suspect]
     Active Substance: VENETOCLAX
     Indication: Acute myeloid leukaemia
     Route: 048
     Dates: start: 20241121
  7. POSACONAZOLE [Concomitant]
     Active Substance: POSACONAZOLE
     Indication: Antibiotic prophylaxis
     Route: 048
     Dates: start: 20240802
  8. ZOFRAN [Concomitant]
     Active Substance: ONDANSETRON HYDROCHLORIDE
     Indication: Prophylaxis of nausea and vomiting
     Dates: start: 20240729, end: 20241004
  9. ZOFRAN [Concomitant]
     Active Substance: ONDANSETRON HYDROCHLORIDE
     Indication: Prophylaxis of nausea and vomiting
     Route: 048
     Dates: start: 20240902, end: 20240909
  10. ALLOPURINOL [Concomitant]
     Active Substance: ALLOPURINOL
     Indication: Metabolic disorder prophylaxis
     Route: 048
     Dates: start: 20240802
  11. AZACITIDINE [Suspect]
     Active Substance: AZACITIDINE
     Indication: Acute myeloid leukaemia
     Dates: start: 20241121
  12. AZACITIDINE [Suspect]
     Active Substance: AZACITIDINE
     Indication: Acute myeloid leukaemia
     Route: 065
     Dates: start: 20240729, end: 20240804
  13. AZACITIDINE [Suspect]
     Active Substance: AZACITIDINE
     Indication: Acute myeloid leukaemia
     Dates: start: 20240902, end: 20240908
  14. AZACITIDINE [Suspect]
     Active Substance: AZACITIDINE
     Indication: Acute myeloid leukaemia
     Route: 065
     Dates: start: 20241118, end: 20241121
  15. AZACITIDINE [Suspect]
     Active Substance: AZACITIDINE
     Indication: Acute myeloid leukaemia
     Dates: start: 20241118, end: 20241121
  16. AZACITIDINE [Suspect]
     Active Substance: AZACITIDINE
     Indication: Acute myeloid leukaemia
     Route: 065
     Dates: start: 20240902, end: 20240908
  17. AZACITIDINE [Suspect]
     Active Substance: AZACITIDINE
     Indication: Acute myeloid leukaemia
     Dates: start: 20240729, end: 20240804
  18. AZACITIDINE [Suspect]
     Active Substance: AZACITIDINE
     Indication: Acute myeloid leukaemia
     Route: 065
     Dates: start: 20241121
  19. INDAPAMIDE\PERINDOPRIL ARGININE [Concomitant]
     Active Substance: INDAPAMIDE\PERINDOPRIL ARGININE
     Indication: Hypertension
     Dosage: 10 MG?FREQUENCY: DAILY
     Route: 048
     Dates: start: 2014
  20. LERCANIDIPINE HYDROCHLORIDE [Concomitant]
     Active Substance: LERCANIDIPINE HYDROCHLORIDE
     Indication: Hypertension
     Route: 048
     Dates: start: 2014
  21. OMEPRAZOLE [Concomitant]
     Active Substance: OMEPRAZOLE
     Indication: Gastrointestinal disorder prophylaxis
     Dates: start: 20240802
  22. AVODART [Concomitant]
     Active Substance: DUTASTERIDE
     Indication: Benign prostatic hyperplasia
     Route: 048
     Dates: start: 2023
  23. SILODOSIN [Concomitant]
     Active Substance: SILODOSIN
     Indication: Benign prostatic hyperplasia
     Route: 048
     Dates: start: 2023
  24. POTASSIUM CHLORIDE [Concomitant]
     Active Substance: POTASSIUM CHLORIDE
     Indication: Mineral supplementation
     Route: 048
     Dates: start: 20240808
  25. NEBIVOLOL HYDROCHLORIDE [Concomitant]
     Active Substance: NEBIVOLOL HYDROCHLORIDE
     Indication: Hypertension
     Route: 048
     Dates: start: 2014
  26. LEVOFLOXACIN [Concomitant]
     Active Substance: LEVOFLOXACIN
     Indication: Antibiotic prophylaxis
     Route: 048
     Dates: start: 20240802, end: 20240807
  27. LEVOFLOXACIN [Concomitant]
     Active Substance: LEVOFLOXACIN
     Indication: Antibiotic prophylaxis
     Route: 048
     Dates: start: 20240808
  28. LEVOFLOXACIN [Concomitant]
     Active Substance: LEVOFLOXACIN
     Indication: Antibiotic prophylaxis
     Route: 048
     Dates: start: 20240808
  29. LEVOFLOXACIN [Concomitant]
     Active Substance: LEVOFLOXACIN
     Indication: Antibiotic prophylaxis
     Route: 048
     Dates: start: 20240802, end: 20240807

REACTIONS (8)
  - Constipation [Recovered/Resolved]
  - Thrombocytopenia [Not Recovered/Not Resolved]
  - Acute kidney injury [Recovered/Resolved]
  - Ecchymosis [Recovered/Resolved]
  - Thrombocytopenia [Recovered/Resolved]
  - Anaemia [Recovered/Resolved]
  - Asthenia [Recovering/Resolving]
  - Epistaxis [Recovered/Resolved]

NARRATIVE: CASE EVENT DATE: 20240801
